FAERS Safety Report 15751615 (Version 2)
Quarter: 2020Q3

REPORT INFORMATION
  Report Type: Report from Study
  Country: CN (occurrence: CN)
  Receive Date: 20181221
  Receipt Date: 20181228
  Transmission Date: 20201104
  Serious: Yes (Life-Threatening, Hospitalization)
  Sender: FDA-Public Use
  Company Number: CN-ASTRAZENECA-2018SF66660

PATIENT
  Age: 24448 Day
  Sex: Male

DRUGS (26)
  1. CISPLATIN. [Suspect]
     Active Substance: CISPLATIN
     Indication: SMALL CELL LUNG CANCER
     Dosage: 50.00 MG/M2
     Route: 065
     Dates: start: 20181017, end: 20181017
  2. MUCOPOLYSACCHARIDE POLYSULFURIC ACID ESTER [Concomitant]
     Indication: CATHETERISATION VENOUS
     Dosage: PRN
     Route: 003
     Dates: start: 20181203
  3. ETOPOSIDE. [Suspect]
     Active Substance: ETOPOSIDE
     Indication: SMALL CELL LUNG CANCER
     Dosage: 160 MG/M2
     Route: 065
     Dates: start: 20181204, end: 20181204
  4. CISPLATIN. [Suspect]
     Active Substance: CISPLATIN
     Indication: SMALL CELL LUNG CANCER
     Dosage: 40.00 MG/M2
     Route: 065
     Dates: start: 20181204, end: 20181204
  5. DURVALUMAB. [Suspect]
     Active Substance: DURVALUMAB
     Indication: SMALL CELL LUNG CANCER
     Route: 042
     Dates: start: 20181107, end: 20181107
  6. DURVALUMAB. [Suspect]
     Active Substance: DURVALUMAB
     Indication: SMALL CELL LUNG CANCER
     Route: 042
     Dates: start: 20181203, end: 20181203
  7. ETOPOSIDE. [Suspect]
     Active Substance: ETOPOSIDE
     Indication: SMALL CELL LUNG CANCER
     Dosage: 160 MG/M2
     Route: 065
     Dates: start: 20181017, end: 20181017
  8. ETOPOSIDE. [Suspect]
     Active Substance: ETOPOSIDE
     Indication: SMALL CELL LUNG CANCER
     Dosage: 160 MG/M2
     Route: 065
     Dates: start: 20181107, end: 20181107
  9. ETOPOSIDE. [Suspect]
     Active Substance: ETOPOSIDE
     Indication: SMALL CELL LUNG CANCER
     Dosage: 160 MG/M2
     Route: 065
     Dates: start: 20181108, end: 20181108
  10. CISPLATIN. [Suspect]
     Active Substance: CISPLATIN
     Indication: SMALL CELL LUNG CANCER
     Dosage: 40.00 MG/M2
     Route: 065
     Dates: start: 20181016, end: 20181016
  11. CISPLATIN. [Suspect]
     Active Substance: CISPLATIN
     Indication: SMALL CELL LUNG CANCER
     Dosage: 40.00 MG/M2
     Route: 065
     Dates: start: 20181107, end: 20181107
  12. CISPLATIN. [Suspect]
     Active Substance: CISPLATIN
     Indication: SMALL CELL LUNG CANCER
     Dosage: 40.00 MG/M2
     Route: 065
     Dates: start: 20181108, end: 20181108
  13. CISPLATIN. [Suspect]
     Active Substance: CISPLATIN
     Indication: SMALL CELL LUNG CANCER
     Dosage: 50.00 MG/M2
     Route: 065
     Dates: start: 20181109, end: 20181109
  14. TREMELIMUMAB. [Suspect]
     Active Substance: TREMELIMUMAB
     Indication: SMALL CELL LUNG CANCER
     Route: 042
     Dates: start: 20181015, end: 20181015
  15. ETOPOSIDE. [Suspect]
     Active Substance: ETOPOSIDE
     Indication: SMALL CELL LUNG CANCER
     Dosage: 160 MG/M2
     Route: 065
     Dates: start: 20181015, end: 20181015
  16. CISPLATIN. [Suspect]
     Active Substance: CISPLATIN
     Indication: SMALL CELL LUNG CANCER
     Dosage: 40.00 MG/M2
     Route: 065
     Dates: start: 20181203, end: 20181203
  17. TREMELIMUMAB. [Suspect]
     Active Substance: TREMELIMUMAB
     Indication: SMALL CELL LUNG CANCER
     Route: 042
     Dates: start: 20181107, end: 20181107
  18. CISPLATIN. [Suspect]
     Active Substance: CISPLATIN
     Indication: SMALL CELL LUNG CANCER
     Dosage: 40.00 MG/M2
     Route: 065
     Dates: start: 20181015, end: 20181015
  19. CISPLATIN. [Suspect]
     Active Substance: CISPLATIN
     Indication: SMALL CELL LUNG CANCER
     Dosage: 40.00 MG/M2
     Route: 065
     Dates: start: 20181205, end: 20181205
  20. DURVALUMAB. [Suspect]
     Active Substance: DURVALUMAB
     Indication: SMALL CELL LUNG CANCER
     Route: 042
     Dates: start: 20181015, end: 20181015
  21. ETOPOSIDE. [Suspect]
     Active Substance: ETOPOSIDE
     Indication: SMALL CELL LUNG CANCER
     Dosage: 160 MG/M2
     Route: 065
     Dates: start: 20181203, end: 20181203
  22. ETOPOSIDE. [Suspect]
     Active Substance: ETOPOSIDE
     Indication: SMALL CELL LUNG CANCER
     Dosage: 160 MG/M2
     Route: 065
     Dates: start: 20181205, end: 20181205
  23. TREMELIMUMAB. [Suspect]
     Active Substance: TREMELIMUMAB
     Indication: SMALL CELL LUNG CANCER
     Route: 042
     Dates: start: 20181203, end: 20181203
  24. ETOPOSIDE. [Suspect]
     Active Substance: ETOPOSIDE
     Indication: SMALL CELL LUNG CANCER
     Dosage: 160 MG/M2
     Route: 065
     Dates: start: 20181016, end: 20181016
  25. ETOPOSIDE. [Suspect]
     Active Substance: ETOPOSIDE
     Indication: SMALL CELL LUNG CANCER
     Dosage: 160 MG/M2
     Route: 065
     Dates: start: 20181109, end: 20181109
  26. CETRIZINE [Concomitant]
     Active Substance: CETIRIZINE HYDROCHLORIDE
     Indication: PRURITUS
     Route: 048
     Dates: start: 20181112

REACTIONS (1)
  - Myelosuppression [Not Recovered/Not Resolved]

NARRATIVE: CASE EVENT DATE: 20181214
